FAERS Safety Report 10948692 (Version 1)
Quarter: 2015Q1

REPORT INFORMATION
  Report Type: Spontaneous
  Country: JP (occurrence: None)
  Receive Date: 20150320
  Receipt Date: 20150320
  Transmission Date: 20150721
  Serious: Yes (Other)
  Sender: FDA-Public Use
  Company Number: 2015FE00844

PATIENT
  Sex: Female

DRUGS (1)
  1. LUTINUS (PROGESTERONE) VAGINAL TABLET, 100MG [Suspect]
     Active Substance: PROGESTERONE
     Indication: ASSISTED FERTILISATION
     Route: 067

REACTIONS (2)
  - Ovulation pain [None]
  - Respiratory depression [None]
